FAERS Safety Report 4330243-7 (Version None)
Quarter: 2004Q1

REPORT INFORMATION
  Report Type: 
  Country: None (occurrence: None)
  Receive Date: 20040329
  Receipt Date: 20040312
  Transmission Date: 20041129
  Serious: Yes (Hospitalization)
  Sender: FDA-Public Use
  Company Number: 2004016740

PATIENT
  Age: 66 Year
  Sex: Male

DRUGS (1)
  1. ZOXAN LP (DOXAZOSIN) [Suspect]
     Indication: PROSTATIC ADENOMA
     Dosage: 8 MG , ORAL
     Route: 048
     Dates: start: 20020615, end: 20040210

REACTIONS (4)
  - DYSPNOEA [None]
  - DYSPNOEA EXERTIONAL [None]
  - GENERALISED OEDEMA [None]
  - OEDEMA [None]
